FAERS Safety Report 20665338 (Version 1)
Quarter: 2022Q2

REPORT INFORMATION
  Report Type: Spontaneous
  Country: US (occurrence: US)
  Receive Date: 20220401
  Receipt Date: 20220401
  Transmission Date: 20220720
  Serious: Yes (Other)
  Sender: FDA-Public Use
  Company Number: US-CELLTRION INC.-2022US003853

PATIENT

DRUGS (1)
  1. TRUXIMA [Suspect]
     Active Substance: RITUXIMAB-ABBS
     Indication: Extranodal marginal zone B-cell lymphoma (MALT type)
     Dosage: 90MG PER M2 IV D1-D2 Q28 D TIMES 6 CYCLES
     Route: 042

REACTIONS (2)
  - Extranodal marginal zone B-cell lymphoma (MALT type) [Unknown]
  - Off label use [Unknown]
